FAERS Safety Report 6767546-2 (Version None)
Quarter: 2010Q2

REPORT INFORMATION
  Report Type: 
  Country: None (occurrence: None)
  Receive Date: 20100614
  Receipt Date: 20100604
  Transmission Date: 20101027
  Serious: Yes (Hospitalization)
  Sender: FDA-Public Use
  Company Number: PHHY2009FR32851

PATIENT
  Sex: Male

DRUGS (11)
  1. STALEVO 100 [Suspect]
     Indication: PARKINSON'S DISEASE
     Dosage: 400/300/75 MG/DAY
     Dates: start: 20090422
  2. NISIS [Concomitant]
     Indication: HYPERTENSION
     Dosage: UNK
     Route: 048
  3. IKOREL [Concomitant]
     Indication: ANGINA PECTORIS
     Dosage: UNK
     Route: 048
     Dates: start: 20051101
  4. DEPAKENE [Concomitant]
     Indication: EPILEPSY
     Dosage: 100 MG, UNK
     Route: 048
     Dates: start: 20040101
  5. REMINYL [Concomitant]
     Indication: SENILE DEMENTIA
     Dosage: UNK
     Route: 048
  6. ZYLORIC [Concomitant]
     Indication: GOUT
     Dosage: UNK
     Route: 048
     Dates: start: 20050101
  7. LASIX [Concomitant]
     Indication: HYPERTENSION
     Dosage: UNK
     Route: 048
     Dates: start: 20040101
  8. PREVISCAN [Concomitant]
     Indication: CARDIAC VALVE DISEASE
     Dosage: UNK
     Route: 048
  9. BENEMIDE [Concomitant]
     Indication: HYPERURICAEMIA
     Dosage: UNK
     Route: 048
     Dates: end: 20090520
  10. TITANOREINE [Concomitant]
     Indication: HAEMORRHOIDS
     Dosage: UNK
     Dates: end: 20090520
  11. ALLOPURINOL [Concomitant]
     Dosage: UNK
     Dates: start: 20050101

REACTIONS (9)
  - CYTOLYTIC HEPATITIS [None]
  - EOSINOPHILIA [None]
  - ERYTHEMA [None]
  - HYPERSENSITIVITY [None]
  - PRURITUS [None]
  - PYREXIA [None]
  - RASH PAPULAR [None]
  - SKIN LESION [None]
  - URTICARIA [None]
